FAERS Safety Report 16692551 (Version 1)
Quarter: 2019Q4

REPORT INFORMATION
  Report Type: Spontaneous
  Country: PR (occurrence: PR)
  Receive Date: 20190809
  Receipt Date: 20190809
  Transmission Date: 20200122
  Serious: No
  Sender: FDA-Public Use
  Company Number: None

PATIENT
  Age: 21 Year
  Sex: Male
  Weight: 67.5 kg

DRUGS (2)
  1. CLINDAMYCIN. [Suspect]
     Active Substance: CLINDAMYCIN
     Indication: OSTEOMYELITIS
     Route: 041
     Dates: start: 20190615, end: 20190630
  2. CIPROFLOXACIN 400MG [Concomitant]
     Active Substance: CIPROFLOXACIN
     Dates: start: 20190615, end: 20190630

REACTIONS (3)
  - Respiratory distress [None]
  - Headache [None]
  - Discomfort [None]

NARRATIVE: CASE EVENT DATE: 20190701
